FAERS Safety Report 16256066 (Version 1)
Quarter: 2019Q2

REPORT INFORMATION
  Report Type: Spontaneous
  Country: US (occurrence: US)
  Receive Date: 20190326
  Receipt Date: 20190326
  Transmission Date: 20190711
  Serious: Yes (Death)
  Sender: FDA-Public Use
  Company Number: None

PATIENT
  Age: 57 Year
  Sex: Female
  Weight: 69.85 kg

DRUGS (1)
  1. MITOMYCIN 20MG [Suspect]
     Active Substance: MITOMYCIN
     Indication: ANAL CANCER
     Route: 042
     Dates: start: 20190312, end: 20190314

REACTIONS (1)
  - Death [None]

NARRATIVE: CASE EVENT DATE: 20190314
